FAERS Safety Report 10213297 (Version 1)
Quarter: 2014Q2

REPORT INFORMATION
  Report Type: Spontaneous
  Country: US (occurrence: None)
  Receive Date: 20140530
  Receipt Date: 20140530
  Transmission Date: 20141212
  Serious: Yes (Hospitalization)
  Sender: FDA-Public Use
  Company Number: None

PATIENT
  Age: 74 Year
  Sex: Male
  Weight: 112.3 kg

DRUGS (1)
  1. PHENYTOIN [Suspect]
     Dates: start: 20130328, end: 20140212

REACTIONS (5)
  - Incorrect dose administered [None]
  - Nystagmus [None]
  - Balance disorder [None]
  - Fall [None]
  - Drug level increased [None]
